FAERS Safety Report 14419898 (Version 3)
Quarter: 2018Q1

REPORT INFORMATION
  Report Type: Spontaneous
  Country: TR (occurrence: TR)
  Receive Date: 20180122
  Receipt Date: 20180305
  Transmission Date: 20180509
  Serious: Yes (Other)
  Sender: FDA-Public Use
  Company Number: TR-ALEXION PHARMACEUTICALS INC.-A201800585

PATIENT
  Age: 3 Month

DRUGS (2)
  1. KANUMA [Suspect]
     Active Substance: SEBELIPASE ALFA
     Dosage: 6 MG/KG, QW
     Route: 065
     Dates: start: 20180109
  2. KANUMA [Suspect]
     Active Substance: SEBELIPASE ALFA
     Indication: LYSOSOMAL ACID LIPASE DEFICIENCY
     Dosage: 3 MG/KG, QW
     Route: 065

REACTIONS (3)
  - Hepatomegaly [Unknown]
  - Hypersensitivity [Unknown]
  - Ascites [Unknown]

NARRATIVE: CASE EVENT DATE: 20180116
